FAERS Safety Report 4850666-7 (Version None)
Quarter: 2005Q4

REPORT INFORMATION
  Report Type: 
  Country: None (occurrence: None)
  Receive Date: 20051208
  Receipt Date: 20051208
  Transmission Date: 20060501
  Serious: Yes (Hospitalization)
  Sender: FDA-Public Use
  Company Number: None

PATIENT
  Age: 49 Year
  Sex: Female
  Weight: 51.2565 kg

DRUGS (1)
  1. GATIFLOXACIN [Suspect]
     Indication: POUCHITIS
     Dosage: 400 MG DAILY IV
     Route: 042
     Dates: start: 20051108, end: 20051119

REACTIONS (1)
  - CLOSTRIDIUM COLITIS [None]
